FAERS Safety Report 10854668 (Version 1)
Quarter: 2015Q1

REPORT INFORMATION
  Report Type: Spontaneous
  Country: US (occurrence: US)
  Receive Date: 20150223
  Receipt Date: 20150223
  Transmission Date: 20150721
  Serious: Yes (Other)
  Sender: FDA-Public Use
  Company Number: US-CELGENEUS-163-21880-14070241

PATIENT
  Age: 73 Year
  Sex: Female
  Weight: 74 kg

DRUGS (32)
  1. REVLIMID [Suspect]
     Active Substance: LENALIDOMIDE
     Route: 048
     Dates: start: 20120327
  2. REVLIMID [Suspect]
     Active Substance: LENALIDOMIDE
     Route: 048
     Dates: start: 20130426
  3. FERROUS SULFATE [Concomitant]
     Active Substance: FERROUS SULFATE\FERROUS SULFATE, DRIED
     Indication: PRODUCT USED FOR UNKNOWN INDICATION
     Route: 065
     Dates: start: 20130715
  4. METOPROLOL SUCCINATE. [Concomitant]
     Active Substance: METOPROLOL SUCCINATE
     Indication: PRODUCT USED FOR UNKNOWN INDICATION
     Route: 048
     Dates: start: 20130304
  5. PROCHLORPERAZINE MALEATE. [Concomitant]
     Active Substance: PROCHLORPERAZINE MALEATE
     Route: 048
     Dates: start: 20140609
  6. REVLIMID [Suspect]
     Active Substance: LENALIDOMIDE
     Route: 048
     Dates: start: 20130304
  7. ACYCLOVIR. [Concomitant]
     Active Substance: ACYCLOVIR
     Route: 048
     Dates: start: 20120203
  8. ALKERAN [Concomitant]
     Active Substance: MELPHALAN
     Indication: PRODUCT USED FOR UNKNOWN INDICATION
     Route: 048
     Dates: start: 20140530
  9. TYLENOL [Concomitant]
     Active Substance: ACETAMINOPHEN
     Indication: BACK PAIN
     Route: 048
  10. PREDNISONE. [Concomitant]
     Active Substance: PREDNISONE
     Route: 048
  11. ACYCLOVIR. [Concomitant]
     Active Substance: ACYCLOVIR
     Route: 048
     Dates: start: 20121003
  12. ACYCLOVIR. [Concomitant]
     Active Substance: ACYCLOVIR
     Route: 048
     Dates: start: 20121005
  13. RAMIPRIL. [Concomitant]
     Active Substance: RAMIPRIL
     Indication: PRODUCT USED FOR UNKNOWN INDICATION
     Route: 065
  14. ZOMETA [Concomitant]
     Active Substance: ZOLEDRONIC ACID
     Indication: PRODUCT USED FOR UNKNOWN INDICATION
     Route: 065
  15. REVLIMID [Suspect]
     Active Substance: LENALIDOMIDE
     Indication: PLASMA CELL MYELOMA
     Route: 048
     Dates: start: 20110929
  16. REVLIMID [Suspect]
     Active Substance: LENALIDOMIDE
     Route: 048
     Dates: start: 20120309
  17. ACYCLOVIR. [Concomitant]
     Active Substance: ACYCLOVIR
     Route: 048
     Dates: start: 20131007
  18. PROCHLORPERAZINE MALEATE. [Concomitant]
     Active Substance: PROCHLORPERAZINE MALEATE
     Indication: PRODUCT USED FOR UNKNOWN INDICATION
     Route: 048
  19. PROCHLORPERAZINE MALEATE. [Concomitant]
     Active Substance: PROCHLORPERAZINE MALEATE
     Route: 048
     Dates: start: 20130904
  20. PROCRIT [Concomitant]
     Active Substance: ERYTHROPOIETIN
     Indication: PRODUCT USED FOR UNKNOWN INDICATION
     Dosage: 40,000 UNITS
     Route: 058
  21. PREDNISONE. [Concomitant]
     Active Substance: PREDNISONE
     Indication: PRODUCT USED FOR UNKNOWN INDICATION
     Route: 048
  22. CALCIUM [Concomitant]
     Active Substance: CALCIUM
     Indication: PRODUCT USED FOR UNKNOWN INDICATION
     Dosage: 1000 UNIT
     Route: 048
  23. ACYCLOVIR. [Concomitant]
     Active Substance: ACYCLOVIR
     Route: 048
     Dates: start: 20111207
  24. AMLODIPINE [Concomitant]
     Active Substance: AMLODIPINE BESYLATE
     Indication: PRODUCT USED FOR UNKNOWN INDICATION
     Route: 048
  25. SODIUM CHLORIDE. [Concomitant]
     Active Substance: SODIUM CHLORIDE
     Indication: PRODUCT USED FOR UNKNOWN INDICATION
     Route: 048
  26. VITAMIN D [Concomitant]
     Active Substance: CHOLECALCIFEROL
     Indication: PRODUCT USED FOR UNKNOWN INDICATION
     Dosage: 400-800 IU
     Route: 065
  27. REVLIMID [Suspect]
     Active Substance: LENALIDOMIDE
     Route: 048
     Dates: start: 20111014
  28. REVLIMID [Suspect]
     Active Substance: LENALIDOMIDE
     Route: 048
     Dates: start: 20120601
  29. REVLIMID [Suspect]
     Active Substance: LENALIDOMIDE
     Route: 048
     Dates: start: 20130708
  30. ACYCLOVIR. [Concomitant]
     Active Substance: ACYCLOVIR
     Indication: ANTIVIRAL PROPHYLAXIS
     Route: 048
     Dates: start: 20111007
  31. ALKERAN [Concomitant]
     Active Substance: MELPHALAN
     Route: 048
  32. MULTI FOR HER- IRON [Concomitant]
     Indication: PRODUCT USED FOR UNKNOWN INDICATION
     Dosage: 18MG- 600MCG
     Route: 048
     Dates: start: 20120727

REACTIONS (3)
  - Plasma cell myeloma [Unknown]
  - Thrombocytopenia [Unknown]
  - Cytopenia [Not Recovered/Not Resolved]

NARRATIVE: CASE EVENT DATE: 20121101
